FAERS Safety Report 6674476-3 (Version None)
Quarter: 2010Q2

REPORT INFORMATION
  Report Type: 
  Country: None (occurrence: None)
  Receive Date: 20100409
  Receipt Date: 20100405
  Transmission Date: 20101027
  Serious: Yes (Death, Hospitalization)
  Sender: FDA-Public Use
  Company Number: PHHY2010US20509

PATIENT
  Sex: Male

DRUGS (1)
  1. EXJADE [Suspect]
     Dosage: 250 MG, BID
     Route: 048

REACTIONS (20)
  - ABDOMINAL COMPARTMENT SYNDROME [None]
  - ABDOMINAL OPERATION [None]
  - ACUTE MYELOID LEUKAEMIA [None]
  - CHOLECYSTECTOMY [None]
  - CHOLELITHIASIS [None]
  - DIALYSIS [None]
  - HAEMATOMA EVACUATION [None]
  - HYPERSPLENISM [None]
  - HYPERURICAEMIA [None]
  - INTRA-ABDOMINAL HAEMORRHAGE [None]
  - LEUKAPHERESIS [None]
  - LEUKOCYTOSIS [None]
  - MALIGNANT NEOPLASM PROGRESSION [None]
  - OLIGURIA [None]
  - PERITONEAL SARCOMA [None]
  - PYREXIA [None]
  - RENAL IMPAIRMENT [None]
  - SPLENOMEGALY [None]
  - STRIDOR [None]
  - TUMOUR LYSIS SYNDROME [None]
